FAERS Safety Report 17326263 (Version 1)
Quarter: 2020Q1

REPORT INFORMATION
  Report Type: Spontaneous
  Country: US (occurrence: US)
  Receive Date: 20200127
  Receipt Date: 20200127
  Transmission Date: 20200409
  Serious: No
  Sender: FDA-Public Use
  Company Number: US-PFIZER INC-2020033226

PATIENT
  Age: 87 Year
  Sex: Female

DRUGS (1)
  1. AROMASIN [Suspect]
     Active Substance: EXEMESTANE
     Indication: NON-HODGKIN^S LYMPHOMA
     Dosage: 25 MG, UNK

REACTIONS (4)
  - Thyroid disorder [Unknown]
  - Product use in unapproved indication [Unknown]
  - Alopecia [Unknown]
  - Off label use [Unknown]
